FAERS Safety Report 8221904-8 (Version None)
Quarter: 2012Q1

REPORT INFORMATION
  Report Type: 
  Country: None (occurrence: None)
  Receive Date: 20120320
  Receipt Date: 20120308
  Transmission Date: 20120608
  Serious: Yes (Hospitalization, Other)
  Sender: FDA-Public Use
  Company Number: CA-JNJFOC-20120304625

PATIENT
  Sex: Female
  Weight: 59 kg

DRUGS (7)
  1. REMICADE [Suspect]
     Indication: CROHN'S DISEASE
     Route: 042
     Dates: start: 20030915
  2. DIAMICRON [Concomitant]
     Route: 065
  3. PREDNISONE [Concomitant]
     Route: 065
  4. ZOLEDRONOC ACID [Concomitant]
     Route: 065
  5. COUMADIN [Concomitant]
     Route: 065
  6. LASIX [Concomitant]
     Route: 065
  7. DIOVAN [Concomitant]
     Route: 065

REACTIONS (4)
  - INTESTINAL RESECTION [None]
  - ATRIAL FIBRILLATION [None]
  - PNEUMONIA ASPIRATION [None]
  - HAEMORRHAGE [None]
